FAERS Safety Report 10698926 (Version 2)
Quarter: 2015Q1

REPORT INFORMATION
  Report Type: Spontaneous
  Country: US (occurrence: US)
  Receive Date: 20150108
  Receipt Date: 20150112
  Transmission Date: 20150721
  Serious: No
  Sender: FDA-Public Use
  Company Number: US-009507513-1412USA013484

PATIENT
  Age: 27 Year
  Sex: Female
  Weight: 84.35 kg

DRUGS (2)
  1. MOTRIN [Concomitant]
     Active Substance: IBUPROFEN
  2. NEXPLANON [Suspect]
     Active Substance: ETONOGESTREL
     Indication: CONTRACEPTION
     Dosage: UNK
     Route: 059
     Dates: start: 20140224

REACTIONS (6)
  - Breast mass [Unknown]
  - Breast mass [Recovered/Resolved]
  - Increased appetite [Recovered/Resolved]
  - Mood swings [Unknown]
  - Menstruation irregular [Unknown]
  - Fatigue [Unknown]

NARRATIVE: CASE EVENT DATE: 2014
